FAERS Safety Report 23538884 (Version 2)
Quarter: 2024Q2

REPORT INFORMATION
  Report Type: Spontaneous
  Country: ES (occurrence: ES)
  Receive Date: 20240219
  Receipt Date: 20240517
  Transmission Date: 20240715
  Serious: Yes (Other)
  Sender: FDA-Public Use
  Company Number: ES-002147023-NVSC2024ES024864

PATIENT
  Age: 72 Year
  Sex: Female

DRUGS (8)
  1. CYCLOSPORINE [Suspect]
     Active Substance: CYCLOSPORINE
     Indication: Immunosuppression
     Dosage: UNK
     Route: 065
     Dates: start: 1996
  2. MYCOPHENOLIC ACID [Suspect]
     Active Substance: MYCOPHENOLIC ACID
     Indication: Immunosuppression
     Dosage: UNK
     Route: 065
     Dates: start: 1996
  3. PREDNISONE [Concomitant]
     Active Substance: PREDNISONE
     Indication: Prophylaxis against transplant rejection
     Dosage: UNK
     Route: 065
     Dates: start: 1996, end: 1997
  4. PREDNISONE [Concomitant]
     Active Substance: PREDNISONE
     Dosage: UNK (IT WAS REINITIATED FOR SECOND KIDNEY TRANSPLANT AND THERAPY WAS CONTINUED)
     Route: 065
     Dates: start: 2020
  5. PREDNISONE [Concomitant]
     Active Substance: PREDNISONE
     Route: 065
  6. BASILIXIMAB [Concomitant]
     Active Substance: BASILIXIMAB
     Indication: Prophylaxis against transplant rejection
     Dosage: UNK
     Route: 065
     Dates: start: 2020
  7. TACROLIMUS [Concomitant]
     Active Substance: TACROLIMUS
     Indication: Prophylaxis against transplant rejection
     Dosage: UNK
     Route: 065
     Dates: start: 2020
  8. EVEROLIMUS [Concomitant]
     Active Substance: EVEROLIMUS
     Indication: Prophylaxis against transplant rejection
     Dosage: UNK
     Route: 065
     Dates: start: 2020

REACTIONS (3)
  - Proteinuria [Recovered/Resolved]
  - Drug specific antibody [Unknown]
  - Off label use [Unknown]

NARRATIVE: CASE EVENT DATE: 20130101
